FAERS Safety Report 6913159-9 (Version None)
Quarter: 2010Q3

REPORT INFORMATION
  Report Type: 
  Country: None (occurrence: None)
  Receive Date: 20100806
  Receipt Date: 20091027
  Transmission Date: 20110219
  Serious: No
  Sender: FDA-Public Use
  Company Number: US-PFIZER INC-2009156318

PATIENT
  Sex: Male
  Weight: 72.5 kg

DRUGS (3)
  1. DILANTIN-125 [Suspect]
     Indication: CONVULSION
     Dosage: 200 MG, 1X/DAY
  2. PHENOBARBITAL [Concomitant]
     Dosage: UNK
  3. FOSAMAX [Concomitant]
     Dosage: UNK

REACTIONS (4)
  - ANTICONVULSANT DRUG LEVEL INCREASED [None]
  - HERPES VIRUS INFECTION [None]
  - SINUS HEADACHE [None]
  - SINUSITIS [None]
